FAERS Safety Report 5070900-0 (Version None)
Quarter: 2006Q3

REPORT INFORMATION
  Report Type: 
  Country: None (occurrence: None)
  Receive Date: 20060804
  Receipt Date: 20060801
  Transmission Date: 20061208
  Serious: Yes (Other)
  Sender: FDA-Public Use
  Company Number: US-JNJFOC-20060605387

PATIENT
  Sex: Male

DRUGS (3)
  1. VIADUR [Suspect]
     Indication: PROSTATE CANCER
     Route: 058
  2. MEGACE [Concomitant]
  3. SLOW FE [Concomitant]

REACTIONS (6)
  - ASTHENIA [None]
  - DEHYDRATION [None]
  - HAEMOGLOBIN DECREASED [None]
  - PALPITATIONS [None]
  - TACHYCARDIA [None]
  - WEIGHT DECREASED [None]
